FAERS Safety Report 19657878 (Version 1)
Quarter: 2021Q3

REPORT INFORMATION
  Report Type: Spontaneous
  Country: IT (occurrence: IT)
  Receive Date: 20210804
  Receipt Date: 20210804
  Transmission Date: 20211014
  Serious: No
  Sender: FDA-Public Use
  Company Number: IT-LUPIN PHARMACEUTICALS INC.-2021-13635

PATIENT
  Age: 42 Year
  Sex: Female

DRUGS (4)
  1. SELEXIPAG [Suspect]
     Active Substance: SELEXIPAG
     Indication: PULMONARY ARTERIAL HYPERTENSION
     Dosage: 200 MICROGRAM, BID (OVER 30 DAY)
     Route: 048
  2. MACITENTAN [Suspect]
     Active Substance: MACITENTAN
     Indication: PULMONARY ARTERIAL HYPERTENSION
     Dosage: 10 MILLIGRAM, QD
     Route: 048
  3. SILDENAFIL. [Suspect]
     Active Substance: SILDENAFIL
     Indication: PULMONARY ARTERIAL HYPERTENSION
     Dosage: 20 MILLIGRAM, TID
     Route: 048
  4. SELEXIPAG [Suspect]
     Active Substance: SELEXIPAG
     Dosage: 1200 MICROGRAM, BID
     Route: 048

REACTIONS (1)
  - Off label use [Unknown]
